FAERS Safety Report 9917800 (Version 1)
Quarter: 2014Q1

REPORT INFORMATION
  Report Type: Spontaneous
  Country: US (occurrence: US)
  Receive Date: 20140221
  Receipt Date: 20140221
  Transmission Date: 20141002
  Serious: No
  Sender: FDA-Public Use
  Company Number: US-PFIZER INC-2014046892

PATIENT
  Sex: Female

DRUGS (7)
  1. METHIMAZOLE [Suspect]
     Indication: BASEDOW^S DISEASE
     Dosage: UNK
  2. ADVAIR [Concomitant]
     Indication: ASTHMA
     Dosage: 250/50MG, UNK
  3. DYMISTA [Concomitant]
     Indication: ASTHMA
     Dosage: UNK
     Route: 045
  4. XOLAIR [Concomitant]
     Indication: ASTHMA
     Dosage: UNK
  5. AVAPRO [Concomitant]
     Indication: HYPERTENSION
     Dosage: UNK
  6. ALLEGRA [Concomitant]
     Dosage: 180 MG, UNK
  7. VITAMIN D3 [Concomitant]
     Dosage: 50000 UNITS, UNK

REACTIONS (1)
  - Asthma [Unknown]
